FAERS Safety Report 9415506 (Version 1)
Quarter: 2013Q3

REPORT INFORMATION
  Report Type: Spontaneous
  Country: US (occurrence: US)
  Receive Date: 20130723
  Receipt Date: 20130723
  Transmission Date: 20140515
  Serious: Yes (Hospitalization, Other)
  Sender: FDA-Public Use
  Company Number: US-ELI_LILLY_AND_COMPANY-US201307005388

PATIENT
  Age: 56 Year
  Sex: Male
  Weight: 70.29 kg

DRUGS (1)
  1. HUMALOG LISPRO [Suspect]
     Dosage: UNK

REACTIONS (7)
  - Diabetic ketoacidosis [Unknown]
  - Hyperglycaemic unconsciousness [Unknown]
  - Blood glucose increased [Unknown]
  - Influenza [Unknown]
  - Hepatic enzyme abnormal [Unknown]
  - Fatigue [Unknown]
  - Stress [Unknown]
